FAERS Safety Report 20047571 (Version 1)
Quarter: 2021Q4

REPORT INFORMATION
  Report Type: Spontaneous
  Country: CN (occurrence: CN)
  Receive Date: 20211109
  Receipt Date: 20211109
  Transmission Date: 20220303
  Serious: Yes (Death, Other)
  Sender: FDA-Public Use
  Company Number: CN-JNJFOC-20211106288

PATIENT

DRUGS (2)
  1. MOTRIN INFANTS [Suspect]
     Active Substance: IBUPROFEN
     Indication: Patent ductus arteriosus
     Dosage: STRENGTH: 15 ML, 0.6 G/VIAL), 10 MG/KG FOR THE FIRST DOSE, 5 MG/KG FOR THE SECOND AND THIRD DOSE, 24
     Route: 048
  2. MOTRIN INFANTS [Suspect]
     Active Substance: IBUPROFEN
     Dosage: STRENGTH: 15 ML, 0.6 G/VIAL), 10 MG/KG FOR THE FIRST DOSE, 5 MG/KG FOR THE SECOND AND THIRD DOSE, 24
     Route: 054

REACTIONS (16)
  - Death [Fatal]
  - Necrotising colitis [Unknown]
  - Newborn persistent pulmonary hypertension [Unknown]
  - Bronchopulmonary dysplasia [Unknown]
  - Retinopathy of prematurity [Unknown]
  - Oliguria [Unknown]
  - Feeding intolerance [Unknown]
  - Blood creatinine increased [Unknown]
  - Blood urea increased [Unknown]
  - Product use in unapproved indication [Unknown]
  - Incorrect route of product administration [Unknown]
  - Off label use [Unknown]
  - Gastric haemorrhage [Unknown]
  - Intraventricular haemorrhage [Unknown]
  - Platelet count decreased [Unknown]
  - Therapeutic response unexpected [Unknown]
